FAERS Safety Report 6188135-7 (Version None)
Quarter: 2009Q2

REPORT INFORMATION
  Report Type: 
  Country: None (occurrence: None)
  Receive Date: 20090513
  Receipt Date: 20080922
  Transmission Date: 20091009
  Serious: No
  Sender: FDA-Public Use
  Company Number: A0749628A

PATIENT
  Sex: Female

DRUGS (1)
  1. DYNACIRC CR [Suspect]
     Indication: BLOOD PRESSURE
     Route: 048
     Dates: end: 20080601

REACTIONS (1)
  - LABILE BLOOD PRESSURE [None]
